FAERS Safety Report 14448799 (Version 2)
Quarter: 2018Q1

REPORT INFORMATION
  Report Type: Other
  Country: JP (occurrence: JP)
  Receive Date: 20180126
  Receipt Date: 20180313
  Transmission Date: 20180509
  Serious: Yes (Life-Threatening, Hospitalization)
  Sender: FDA-Public Use
  Company Number: JP-LUNDBECK-DKLU2043228

PATIENT
  Age: 58 Year
  Sex: Male

DRUGS (2)
  1. DOPS [Suspect]
     Active Substance: DROXIDOPA
     Indication: PRODUCT USED FOR UNKNOWN INDICATION
     Route: 048
  2. EPINEPHRINE. [Concomitant]
     Active Substance: EPINEPHRINE
     Indication: PRODUCT USED FOR UNKNOWN INDICATION
     Route: 065

REACTIONS (1)
  - Hypovolaemic shock [Recovered/Resolved]
